FAERS Safety Report 6262613-4 (Version None)
Quarter: 2009Q3

REPORT INFORMATION
  Report Type: 
  Country: None (occurrence: None)
  Receive Date: 20090709
  Receipt Date: 20090706
  Transmission Date: 20100115
  Serious: Yes (Hospitalization)
  Sender: FDA-Public Use
  Company Number: PL-MEDIMMUNE-MEDI-0008457

PATIENT
  Sex: Male
  Weight: 1.09 kg

DRUGS (3)
  1. SYNAGIS [Suspect]
     Indication: BRONCHOPULMONARY DYSPLASIA
     Route: 030
     Dates: start: 20090128, end: 20090128
  2. SYNAGIS [Suspect]
     Route: 030
     Dates: start: 20090223
  3. SYNAGIS [Suspect]
     Route: 030
     Dates: start: 20090423

REACTIONS (2)
  - BRONCHITIS CHRONIC [None]
  - RESPIRATORY DISORDER [None]
